FAERS Safety Report 14455906 (Version 1)
Quarter: 2018Q1

REPORT INFORMATION
  Report Type: Spontaneous
  Country: US (occurrence: US)
  Receive Date: 20180130
  Receipt Date: 20180130
  Transmission Date: 20180509
  Serious: Yes (Life-Threatening, Hospitalization)
  Sender: FDA-Public Use
  Company Number: US-SUN PHARMACEUTICAL INDUSTRIES LTD-2018US-161529

PATIENT
  Age: 29 Year
  Sex: Male

DRUGS (1)
  1. VALPROIC ACID. [Suspect]
     Active Substance: VALPROIC ACID
     Indication: AFFECTIVE DISORDER
     Route: 065

REACTIONS (8)
  - Hypernatraemia [Recovering/Resolving]
  - Hyperammonaemia [Recovering/Resolving]
  - Lactic acidosis [Recovering/Resolving]
  - Mental status changes [Recovering/Resolving]
  - Hypocalcaemia [Recovering/Resolving]
  - Overdose [Recovering/Resolving]
  - Anion gap increased [Recovering/Resolving]
  - Hyperkalaemia [Recovering/Resolving]
